FAERS Safety Report 6984705-4 (Version None)
Quarter: 2010Q3

REPORT INFORMATION
  Report Type: 
  Country: None (occurrence: None)
  Receive Date: 20100915
  Receipt Date: 20100903
  Transmission Date: 20110219
  Serious: Yes (Other)
  Sender: FDA-Public Use
  Company Number: JP-SANOFI-AVENTIS-2010SA033263

PATIENT
  Age: 42 Year
  Sex: Male
  Weight: 75 kg

DRUGS (8)
  1. MYSLEE [Suspect]
     Indication: INSOMNIA
     Route: 048
     Dates: start: 20080401, end: 20080404
  2. MYSLEE [Suspect]
     Route: 048
     Dates: start: 20080728, end: 20090215
  3. MYSLEE [Suspect]
     Route: 048
     Dates: start: 20090409, end: 20090702
  4. MYSLEE [Suspect]
     Route: 048
     Dates: start: 20091017, end: 20100507
  5. ABILIT [Concomitant]
     Indication: DEPRESSION
     Route: 048
     Dates: start: 20080401
  6. DEPROMEL [Concomitant]
     Indication: DEPRESSION
     Route: 048
     Dates: start: 20080405
  7. LUDIOMIL [Concomitant]
     Indication: DEPRESSION
     Route: 048
     Dates: start: 20080419
  8. LIMAS [Concomitant]
     Indication: DEPRESSION
     Route: 048
     Dates: start: 20080818

REACTIONS (2)
  - MEMORY IMPAIRMENT [None]
  - ROAD TRAFFIC ACCIDENT [None]
